FAERS Safety Report 13386404 (Version 1)
Quarter: 2017Q1

REPORT INFORMATION
  Report Type: Spontaneous
  Country: US (occurrence: US)
  Receive Date: 20170330
  Receipt Date: 20170330
  Transmission Date: 20170429
  Serious: No
  Sender: FDA-Public Use
  Company Number: US-ASTRAZENECA-2017SE30280

PATIENT
  Sex: Female

DRUGS (8)
  1. BYDUREON [Suspect]
     Active Substance: EXENATIDE
     Indication: TYPE 2 DIABETES MELLITUS
     Route: 058
     Dates: start: 201701
  2. LEVOTHYROXINE. [Concomitant]
     Active Substance: LEVOTHYROXINE
     Indication: THYROID DISORDER
     Route: 048
     Dates: start: 2016
  3. IRBESARTAN. [Concomitant]
     Active Substance: IRBESARTAN
     Indication: DIURETIC THERAPY
     Dosage: 150/12.5 MG, DAILY
     Route: 048
  4. IRBESARTAN. [Concomitant]
     Active Substance: IRBESARTAN
     Indication: BLOOD PRESSURE ABNORMAL
     Dosage: 150/12.5 MG, DAILY
     Route: 048
  5. FOLIC ACID. [Concomitant]
     Active Substance: FOLIC ACID
     Indication: SUPPLEMENTATION THERAPY
     Dosage: DAILY
     Route: 048
  6. SULFASALZINE [Concomitant]
     Active Substance: SULFASALAZINE
     Indication: RHEUMATOID ARTHRITIS
     Route: 048
     Dates: start: 2013
  7. CINNAMON. [Concomitant]
     Active Substance: CINNAMON
     Indication: SUPPLEMENTATION THERAPY
     Dosage: DAILY
     Route: 048
  8. METFORMIN [Concomitant]
     Active Substance: METFORMIN HYDROCHLORIDE
     Indication: TYPE 2 DIABETES MELLITUS
     Route: 048

REACTIONS (7)
  - Injection site pain [Unknown]
  - Injection site mass [Unknown]
  - Injection site erythema [Recovered/Resolved]
  - Injection site pruritus [Recovered/Resolved]
  - Wrong technique in product usage process [Unknown]
  - Decreased appetite [Unknown]
  - Device malfunction [Unknown]
